FAERS Safety Report 8962382 (Version 1)
Quarter: 2012Q4

REPORT INFORMATION
  Report Type: 
  Country: US (occurrence: None)
  Receive Date: 20121211
  Receipt Date: 20121211
  Transmission Date: 20130627
  Serious: No
  Sender: FDA-Public Use
  Company Number: None

PATIENT
  Sex: Female
  Weight: 82.1 kg

DRUGS (2)
  1. TOPOTECAN [Suspect]
     Dates: start: 20121120, end: 20121204
  2. KEPPRA [Concomitant]

REACTIONS (3)
  - Lymphopenia [None]
  - Neutrophil count decreased [None]
  - Dizziness [None]
